FAERS Safety Report 6260361-8 (Version None)
Quarter: 2009Q3

REPORT INFORMATION
  Report Type: 
  Country: None (occurrence: None)
  Receive Date: 20090706
  Receipt Date: 20090616
  Transmission Date: 20100115
  Serious: Yes (Disabling)
  Sender: FDA-Public Use
  Company Number: CLOF-1000567

PATIENT
  Age: 8 Year
  Sex: Female
  Weight: 27 kg

DRUGS (5)
  1. EVOLTRA (CLOFARABINE) SOLUTION FOR INFUSION [Suspect]
     Indication: ACUTE LYMPHOCYTIC LEUKAEMIA
     Dosage: 40 MG/DAY, X 4 DAY, INTRAVENOUS
     Route: 042
     Dates: start: 20090423, end: 20090427
  2. VORICONAZOLE [Concomitant]
  3. BACTRIM [Concomitant]
  4. PIPERACILLIN SODIUM AND TAZOBACTAM SODIUM [Concomitant]
  5. ACYCLOVIR [Concomitant]

REACTIONS (6)
  - ABDOMINAL PAIN [None]
  - BLISTER [None]
  - DERMATITIS [None]
  - HYPOTHERMIA [None]
  - INFUSION RELATED REACTION [None]
  - MUCOSAL INFLAMMATION [None]
